FAERS Safety Report 9438784 (Version 2)
Quarter: 2013Q4

REPORT INFORMATION
  Report Type: Spontaneous
  Country: US (occurrence: US)
  Receive Date: 20130802
  Receipt Date: 20131018
  Transmission Date: 20140711
  Serious: No
  Sender: FDA-Public Use
  Company Number: US-B.I. PHARMACEUTICALS,INC./RIDGEFIELD-2013-BI-22670BP

PATIENT
  Age: 83 Year
  Sex: Female
  Weight: 71 kg

DRUGS (9)
  1. PRADAXA [Suspect]
     Indication: CEREBROVASCULAR ACCIDENT PROPHYLAXIS
     Dosage: 300 MG
     Route: 048
     Dates: start: 20130707, end: 20130717
  2. PRADAXA [Suspect]
     Indication: ATRIAL FIBRILLATION
  3. AMLODIPINE BESYLATE [Concomitant]
     Dosage: 10 MG
     Route: 048
  4. REFILL WARFARIN SODIUM [Concomitant]
     Dosage: TAKE 2 TABLETS ON MONDAY/WED AND FRIDAY, AND 1 TABLET DAILYTH REST OF THE DAYS AS DIRECTED.
     Route: 048
  5. METFORMIN HCL [Concomitant]
     Dosage: 1000 MG
     Route: 048
  6. METOPROLOL SUCCINATE [Concomitant]
     Route: 048
  7. LOSARTAN POTASSIUM [Concomitant]
     Dosage: 100 MG
     Route: 048
  8. LOVASTATIN [Concomitant]
     Dosage: 10 MG
     Route: 048
  9. FLONASE [Concomitant]
     Dosage: NASAL SPRAY: 50 MCG/ACT SPRAY IN EACH NOSTRIL

REACTIONS (2)
  - Flatulence [Recovered/Resolved]
  - Abdominal pain upper [Recovered/Resolved]
